FAERS Safety Report 24295697 (Version 3)
Quarter: 2024Q3

REPORT INFORMATION
  Report Type: Report from Study
  Country: US (occurrence: US)
  Receive Date: 20240908
  Receipt Date: 20240915
  Transmission Date: 20241016
  Serious: No
  Sender: SANDOZ
  Company Number: US-SANDOZ-SDZ2024US077569

PATIENT
  Age: 11 Year
  Sex: Male

DRUGS (6)
  1. OMNITROPE [Suspect]
     Active Substance: SOMATROPIN
     Dosage: 1.7 MG, QD
     Route: 058
  2. OMNITROPE [Suspect]
     Active Substance: SOMATROPIN
     Dosage: 1.7 MG, QD
     Route: 058
  3. OMNITROPE [Suspect]
     Active Substance: SOMATROPIN
     Indication: Hypopituitarism
     Dosage: 10 MG, QD
     Route: 030
     Dates: start: 20240428
  4. OMNITROPE [Suspect]
     Active Substance: SOMATROPIN
     Indication: Hypopituitarism
     Dosage: 10 MG, QD
     Route: 030
     Dates: start: 20240428
  5. OMNITROPE [Suspect]
     Active Substance: SOMATROPIN
     Dosage: UNK UNK, QD
     Route: 065
     Dates: start: 20240903
  6. OMNITROPE [Suspect]
     Active Substance: SOMATROPIN
     Dosage: UNK UNK, QD
     Route: 065
     Dates: start: 20240903

REACTIONS (6)
  - Incorrect dose administered [Unknown]
  - Circumstance or information capable of leading to device use error [Unknown]
  - Incorrect dose administered by device [Unknown]
  - Device delivery system issue [Unknown]
  - Device defective [Unknown]
  - Drug dose omission by device [Unknown]

NARRATIVE: CASE EVENT DATE: 20240903
